FAERS Safety Report 13117444 (Version 3)
Quarter: 2017Q1

REPORT INFORMATION
  Report Type: Report from Study
  Country: BR (occurrence: BR)
  Receive Date: 20170116
  Receipt Date: 20170214
  Transmission Date: 20170428
  Serious: Yes (Disabling, Other)
  Sender: FDA-Public Use
  Company Number: BR-JNJFOC-20170107550

PATIENT
  Sex: Female
  Weight: 58 kg

DRUGS (8)
  1. FOLIC ACID. [Concomitant]
     Active Substance: FOLIC ACID
  2. TANDERALGIN [Concomitant]
     Route: 065
  3. METHOTREXATE. [Concomitant]
     Active Substance: METHOTREXATE
  4. CALCIUM [Concomitant]
     Active Substance: CALCIUM
  5. NIMESULIDE [Concomitant]
     Active Substance: NIMESULIDE
     Route: 065
  6. CYCLOBENZAPRINE [Concomitant]
     Active Substance: CYCLOBENZAPRINE
     Route: 065
  7. SIMPONI [Suspect]
     Active Substance: GOLIMUMAB
     Indication: RHEUMATOID ARTHRITIS
     Route: 058
     Dates: start: 20140510
  8. PREDNISOLONE. [Concomitant]
     Active Substance: PREDNISOLONE
     Route: 065

REACTIONS (10)
  - Loose tooth [Unknown]
  - Pain [Unknown]
  - Atrophy [Unknown]
  - Tooth disorder [Unknown]
  - Spinal pain [Unknown]
  - Peripheral swelling [Unknown]
  - Limb injury [Unknown]
  - Drug ineffective [Unknown]
  - Gait disturbance [Unknown]
  - Gingival bleeding [Unknown]

NARRATIVE: CASE EVENT DATE: 2016
